FAERS Safety Report 4346007-4 (Version None)
Quarter: 2004Q2

REPORT INFORMATION
  Report Type: 
  Country: None (occurrence: None)
  Receive Date: 20040423
  Receipt Date: 20040423
  Transmission Date: 20050107
  Serious: Yes (Hospitalization)
  Sender: FDA-Public Use
  Company Number: None

PATIENT
  Sex: Female
  Weight: 62 kg

DRUGS (7)
  1. ALBUTEROL [Suspect]
     Indication: STATUS ASTHMATICUS
     Dosage: 12 MG Q HOUR RESPIRATORY
     Route: 055
     Dates: start: 20040411, end: 20040420
  2. LEVAQUIN [Concomitant]
  3. CISATRICURIUM [Concomitant]
  4. PROPOFOL [Concomitant]
  5. HEPARIN [Concomitant]
  6. FENTANYL [Concomitant]
  7. DEXAMETHASONE [Concomitant]

REACTIONS (3)
  - DRUG INEFFECTIVE [None]
  - HEART RATE INCREASED [None]
  - PHARMACEUTICAL PRODUCT COMPLAINT [None]
